FAERS Safety Report 6183271-3 (Version None)
Quarter: 2009Q2

REPORT INFORMATION
  Report Type: 
  Country: None (occurrence: None)
  Receive Date: 20090506
  Receipt Date: 20090421
  Transmission Date: 20091009
  Serious: Yes (Hospitalization, Other)
  Sender: FDA-Public Use
  Company Number: ACO_00546_2009

PATIENT
  Sex: Female
  Weight: 47 kg

DRUGS (13)
  1. TIZANIDINE HCL [Suspect]
     Indication: BACK PAIN
     Dosage: (1 MG BID ORAL)
     Route: 048
     Dates: start: 20090309, end: 20090310
  2. TIZANIDINE HCL [Suspect]
     Indication: BACK PAIN
     Dosage: (2 MG QD ORAL)
     Route: 048
     Dates: start: 20090219, end: 20090226
  3. DIOVAN [Suspect]
     Indication: HYPERTENSION
     Dosage: (80 MG QD ORAL)
     Route: 048
     Dates: start: 20051222, end: 20090310
  4. DEPROMEL /00615201/ (DEPROMEL) (NOT SPECIFIED) [Suspect]
     Indication: DEPRESSION
     Dosage: (25 MG QD ORAL)
     Route: 048
     Dates: start: 20050811
  5. NATRIX (NATRIX) (NOT SPECIFIED) [Suspect]
     Indication: HYPERTENSION
     Dosage: (1 MG QD ORAL)
     Route: 048
     Dates: start: 20060209, end: 20090310
  6. NATRIX (NATRIX) (NOT SPECIFIED) [Suspect]
     Indication: HYPERTENSION
     Dosage: (1 MG QD ORAL)
     Route: 048
     Dates: start: 20090313, end: 20090320
  7. LOXONIN /00890702/ (LOXONIN) (NOT SPECIFIED) [Suspect]
     Indication: BACK PAIN
     Dosage: (ORAL)
     Route: 048
     Dates: end: 20090219
  8. LOXONIN /00890702/ (LOXONIN) (NOT SPECIFIED) [Suspect]
     Indication: BACK PAIN
     Dosage: (ORAL)
     Route: 048
     Dates: end: 20090316
  9. DIOVAN [Suspect]
     Indication: HYPERTENSION
     Dosage: (80 MG QD ORAL)
     Route: 048
     Dates: start: 20090313
  10. DIAZEPAM [Concomitant]
  11. MEVALOTIN [Concomitant]
  12. MYSLEE [Concomitant]
  13. MUCOSTA [Concomitant]

REACTIONS (6)
  - BLOOD PRESSURE DECREASED [None]
  - BLOOD PRESSURE INCREASED [None]
  - HEADACHE [None]
  - POTENTIATING DRUG INTERACTION [None]
  - SOMNOLENCE [None]
  - SPINAL COMPRESSION FRACTURE [None]
